FAERS Safety Report 17183408 (Version 2)
Quarter: 2020Q2

REPORT INFORMATION
  Report Type: Report from Study
  Country: CA (occurrence: CA)
  Receive Date: 20191220
  Receipt Date: 20200429
  Transmission Date: 20200713
  Serious: Yes (Other)
  Sender: FDA-Public Use
  Company Number: NVSC2019CA070778

PATIENT
  Age: 72 Year
  Sex: Male

DRUGS (5)
  1. ENTRESTO [Suspect]
     Active Substance: SACUBITRIL\VALSARTAN
     Dosage: 2 DF (97MG /103MG), UNKNOWN
     Route: 065
     Dates: start: 20170930, end: 20180223
  2. ENTRESTO [Suspect]
     Active Substance: SACUBITRIL\VALSARTAN
     Dosage: 2 DF (49MG /51MG), UNKNOWN
     Route: 065
     Dates: start: 20180622, end: 20181030
  3. ENTRESTO [Suspect]
     Active Substance: SACUBITRIL\VALSARTAN
     Dosage: 2 DF (97MG /103MG), UNKNOWN
     Route: 065
     Dates: start: 20181030
  4. ENTRESTO [Suspect]
     Active Substance: SACUBITRIL\VALSARTAN
     Indication: CARDIAC FAILURE
     Dosage: 2 DF (49MG /51MG), UNKNOWN
     Route: 065
     Dates: start: 20170511, end: 20170929
  5. ENTRESTO [Suspect]
     Active Substance: SACUBITRIL\VALSARTAN
     Dosage: 2 DF (24MG /26MG), UNKNOWN
     Route: 065
     Dates: start: 20180223, end: 20180622

REACTIONS (2)
  - Device electrical impedance issue [Recovered/Resolved]
  - Renal impairment [Not Recovered/Not Resolved]

NARRATIVE: CASE EVENT DATE: 20191203
